FAERS Safety Report 10525231 (Version 1)
Quarter: 2014Q4

REPORT INFORMATION
  Report Type: Report from Study
  Country: US (occurrence: US)
  Receive Date: 20141017
  Receipt Date: 20141017
  Transmission Date: 20150528
  Serious: Yes (Other)
  Sender: FDA-Public Use
  Company Number: US-BRISTOL-MYERS SQUIBB COMPANY-21470489

PATIENT
  Age: 61 Year
  Sex: Female

DRUGS (1)
  1. ORENCIA [Suspect]
     Active Substance: ABATACEPT
     Dosage: LAST INFUSION WAS ON 19JUN2013, SELF-INJECTIONS IN FEB-2014
     Route: 042

REACTIONS (1)
  - Accident [Unknown]

NARRATIVE: CASE EVENT DATE: 20130622
